FAERS Safety Report 6199711-X (Version None)
Quarter: 2009Q2

REPORT INFORMATION
  Report Type: 
  Country: None (occurrence: None)
  Receive Date: 20090522
  Receipt Date: 20090512
  Transmission Date: 20091009
  Serious: Yes (Hospitalization, Other)
  Sender: FDA-Public Use
  Company Number: FR-PFIZER INC-2007020771

PATIENT
  Age: 59 Year

DRUGS (17)
  1. VORICONAZOLE [Suspect]
     Indication: ANTIFUNGAL PROPHYLAXIS
     Dosage: 456 MG, 2X/DAY
     Route: 042
     Dates: start: 20070119, end: 20070119
  2. VORICONAZOLE [Suspect]
     Dosage: 305 MG, 2X/DAY
     Route: 042
     Dates: start: 20070120, end: 20070120
  3. VORICONAZOLE [Suspect]
     Dosage: 264 MG, 2X/DAY
     Route: 042
     Dates: start: 20070129, end: 20070207
  4. VORICONAZOLE [Suspect]
     Dosage: 264 MG, 1X/DAY
     Route: 042
     Dates: start: 20070208, end: 20070208
  5. VORICONAZOLE [Suspect]
     Dosage: 200 MG, 2X/DAY
     Route: 048
     Dates: start: 20070121, end: 20070128
  6. VORICONAZOLE [Suspect]
     Dosage: 200 MG, 1X/DAY
     Route: 048
     Dates: start: 20070208, end: 20070208
  7. VORICONAZOLE [Suspect]
     Dosage: 200 MG, 2X/DAY
     Route: 048
     Dates: start: 20070209, end: 20070313
  8. VORICONAZOLE [Suspect]
     Dosage: 200 MG, 2X/DAY
     Route: 048
     Dates: start: 20070323, end: 20070326
  9. DEXTROPROPOXYPHENE [Concomitant]
     Route: 048
     Dates: start: 20070307
  10. OMEPRAZOLE [Concomitant]
     Route: 048
     Dates: start: 20070111, end: 20070320
  11. BROMAZEPAM [Concomitant]
     Route: 048
  12. ZOLPIDEM TARTRATE [Concomitant]
     Route: 048
  13. BACTRIM [Concomitant]
     Route: 048
     Dates: start: 20070214
  14. ORACILLINE [Concomitant]
     Route: 048
     Dates: start: 20070214
  15. VALACYCLOVIR [Concomitant]
     Route: 048
     Dates: start: 20070214, end: 20070427
  16. MAGNESIUM HYDROXIDE TAB [Concomitant]
     Route: 048
     Dates: start: 20070214
  17. CYCLOSPORINE [Concomitant]
     Route: 048
     Dates: start: 20070117

REACTIONS (1)
  - HEADACHE [None]
